FAERS Safety Report 10243864 (Version 3)
Quarter: 2014Q4

REPORT INFORMATION
  Report Type: Spontaneous
  Country: US (occurrence: US)
  Receive Date: 20140618
  Receipt Date: 20141010
  Transmission Date: 20150528
  Serious: Yes (Hospitalization)
  Sender: FDA-Public Use
  Company Number: US-SA-2014SA076194

PATIENT
  Age: 77 Year
  Sex: Male
  Weight: 84.36 kg

DRUGS (27)
  1. SIMVASTATIN. [Concomitant]
     Active Substance: SIMVASTATIN
     Indication: BLOOD CHOLESTEROL
     Dosage: DOSE:1, 20MG AND TIME:8PM
     Dates: start: 201402
  2. CALCIUM/VITAMIN D [Concomitant]
     Active Substance: CALCIUM\VITAMIN D
     Indication: NUTRITIONAL SUPPLEMENTATION
     Dosage: DOSE:1, 600MG AND TIME:8AM/8PM
     Dates: start: 201402
  3. LANTUS [Concomitant]
     Active Substance: INSULIN GLARGINE
     Indication: BLOOD INSULIN
     Dosage: TIME:8AM/8PM DOSE:18 UNIT(S)
     Dates: start: 201402
  4. PREDNISONE. [Concomitant]
     Active Substance: PREDNISONE
     Indication: PROPHYLAXIS
     Dosage: DOSE:1, 5MG AND TIME:8AM
     Dates: start: 201402
  5. ASPIRIN. [Concomitant]
     Active Substance: ASPIRIN
     Indication: CARDIAC DISORDER
     Dosage: DOSE:1, 81MG ANDTIME: 8PM
     Dates: start: 201402
  6. POTASSIUM [Concomitant]
     Active Substance: POTASSIUM
     Indication: FLUID RETENTION
     Dosage: DOSE:10, 10MEQ AND TIME:8AM (M, W, F + S)
     Dates: start: 201402
  7. ACYCLOVIR. [Concomitant]
     Active Substance: ACYCLOVIR
     Indication: ANTIVIRAL TREATMENT
     Dosage: DOSE:1, 400MG AND TIME:8PM
     Dates: start: 201402
  8. AMLODIPINE BESILATE [Concomitant]
     Active Substance: AMLODIPINE BESYLATE
     Indication: BLOOD PRESSURE
     Dosage: TIME:8AM
     Dates: start: 201402
  9. TESTIM [Concomitant]
     Active Substance: TESTOSTERONE
     Indication: BLOOD TESTOSTERONE
     Dosage: DOSE:1 TUB OF GEL AND TIME:8AM
     Dates: start: 201402
  10. TACROLIMUS. [Concomitant]
     Active Substance: TACROLIMUS
     Indication: PROPHYLAXIS
     Dosage: DOSE: 2,1/2, 1MG AND TIME:8AM/8PM
     Dates: start: 201402
  11. VITAMIN D [Concomitant]
     Active Substance: CHOLECALCIFEROL
     Dosage: DOSE:1, 1000MG
     Dates: start: 201402
  12. NOVOLOG [Concomitant]
     Active Substance: INSULIN ASPART
     Dosage: DOSE: SLIDING SCALE (4/4/4)
  13. LANTUS SOLOSTAR [Suspect]
     Active Substance: INSULIN GLARGINE
     Indication: DIABETES MELLITUS
     Dosage: DAILY DOSE:36/40 UNITS DOSE:19 UNIT(S)
     Route: 065
     Dates: start: 20070801
  14. MYFORTIC [Concomitant]
     Active Substance: MYCOPHENOLATE SODIUM
     Indication: PROPHYLAXIS
     Dosage: TIME: 8A M/8PM, DOSE:1, 360MG
     Dates: start: 201402
  15. AZITHROMYCIN [Concomitant]
     Active Substance: AZITHROMYCIN ANHYDROUS
     Indication: PROPHYLAXIS
     Dosage: DOSE: 1, 250 MG AND TIME:8AM (M,W +F)
     Dates: start: 201402
  16. SYMBICORT [Concomitant]
     Active Substance: BUDESONIDE\FORMOTEROL FUMARATE DIHYDRATE
     Indication: BRONCHIAL DISORDER
     Dosage: DOSE: 2 PUFFS
     Dates: start: 201402
  17. SOLOSTAR [Concomitant]
     Active Substance: DEVICE
     Indication: DIABETES MELLITUS
     Dates: start: 20070801
  18. SMZ-TMP [Concomitant]
     Active Substance: SULFAMETHOXAZOLE\TRIMETHOPRIM
     Indication: PNEUMONIA
     Dosage: DOSE: 1, 800-160MG AND TIME:8AM (M+THURS)
     Dates: start: 201402
  19. NEXIUM [Concomitant]
     Active Substance: ESOMEPRAZOLE MAGNESIUM
     Indication: HYPERCHLORHYDRIA
     Dosage: DOSE: 1, 10MG, TIME:8AM (E.O.D)
     Dates: start: 201402
  20. METOPROLOL TARTRATE. [Concomitant]
     Active Substance: METOPROLOL TARTRATE
     Indication: BLOOD PRESSURE
     Dosage: DOSE:3, 25MG AND TIME:8AM/8PM
     Dates: start: 201402
  21. PRENATAL VITAMINS [Concomitant]
     Active Substance: VITAMINS
     Indication: NUTRITIONAL SUPPLEMENTATION
     Dosage: DOSE:1, 1,000 IU AND TIME:8PM
     Dates: start: 201402
  22. PLAVIX [Concomitant]
     Active Substance: CLOPIDOGREL BISULFATE
     Indication: CARDIAC DISORDER
     Dosage: DOSE:1, 75MG AND TIME:8PM
     Dates: start: 201402
  23. FUROSEMIDE. [Concomitant]
     Active Substance: FUROSEMIDE
     Indication: FLUID RETENTION
     Dosage: DOSE:1, 20MG AND TIME:8AM (M, W, F + S)
     Dates: start: 201402
  24. LEVOTHYROXINE [Concomitant]
     Active Substance: LEVOTHYROXINE
     Indication: THYROID DISORDER
     Dosage: TIME:8AM
     Dates: start: 201402
  25. NITROGLYCERIN ^SLOVAKOFARMA^ [Concomitant]
     Indication: CARDIAC DISORDER
     Dates: start: 201402
  26. INSULIN ASPART [Concomitant]
     Active Substance: INSULIN ASPART
     Indication: BLOOD INSULIN
     Dosage: DOSE:4 UNITS + S/SCALE AND TIME:8AM/2PM/8PM
     Dates: start: 201402
  27. RECLAST [Concomitant]
     Active Substance: ZOLEDRONIC ACID
     Indication: CARDIAC DISORDER
     Dosage: ANNUAL INJECTION
     Dates: start: 201402

REACTIONS (3)
  - Off label use [Unknown]
  - Viral infection [Unknown]
  - Weight decreased [Unknown]
